FAERS Safety Report 18987255 (Version 2)
Quarter: 2021Q3

REPORT INFORMATION
  Report Type: Spontaneous
  Country: US (occurrence: US)
  Receive Date: 20210309
  Receipt Date: 20210720
  Transmission Date: 20211014
  Serious: Yes (Other)
  Sender: FDA-Public Use
  Company Number: US-GILEAD-2021-0519298

PATIENT
  Age: 43 Year
  Sex: Female
  Weight: 89.8 kg

DRUGS (3)
  1. ATRIPLA [Suspect]
     Active Substance: EFAVIRENZ\EMTRICITABINE\TENOFOVIR DISOPROXIL FUMARATE
     Indication: HIV INFECTION
     Dosage: UNK
     Route: 048
     Dates: start: 201301, end: 201303
  2. COMPLERA [Suspect]
     Active Substance: EMTRICITABINE\RILPIVIRINE HYDROCHLORIDE\TENOFOVIR DISOPROXIL FUMARATE
     Indication: HIV INFECTION
     Dosage: UNK
     Route: 048
     Dates: start: 201304, end: 202002
  3. ODEFSEY [Concomitant]
     Active Substance: EMTRICITABINE\RILPIVIRINE HYDROCHLORIDE\TENOFOVIR ALAFENAMIDE FUMARATE

REACTIONS (19)
  - Depression [Not Recovered/Not Resolved]
  - Pain in extremity [Unknown]
  - Pain [Not Recovered/Not Resolved]
  - Headache [Unknown]
  - Chronic kidney disease [Not Recovered/Not Resolved]
  - Anhedonia [Not Recovered/Not Resolved]
  - Hypertension [Not Recovered/Not Resolved]
  - Dysstasia [Not Recovered/Not Resolved]
  - Back pain [Unknown]
  - Emotional distress [Not Recovered/Not Resolved]
  - Anxiety [Not Recovered/Not Resolved]
  - Kidney infection [Not Recovered/Not Resolved]
  - Osteoarthritis [Not Recovered/Not Resolved]
  - Muscular weakness [Not Recovered/Not Resolved]
  - Chronic kidney disease [Unknown]
  - Post-traumatic stress disorder [Not Recovered/Not Resolved]
  - Balance disorder [Not Recovered/Not Resolved]
  - Osteoporosis [Not Recovered/Not Resolved]
  - Neuropathy peripheral [Unknown]

NARRATIVE: CASE EVENT DATE: 20131219
